FAERS Safety Report 6022721-X (Version None)
Quarter: 2008Q4

REPORT INFORMATION
  Report Type: 
  Country: None (occurrence: None)
  Receive Date: 20081230
  Receipt Date: 20081220
  Transmission Date: 20090506
  Serious: Yes (Other)
  Sender: FDA-Public Use
  Company Number: IN-PFIZER INC-2008099389

PATIENT

DRUGS (1)
  1. LYRICA [Suspect]
     Route: 048
     Dates: start: 20081117, end: 20081118

REACTIONS (5)
  - ABASIA [None]
  - HEADACHE [None]
  - SOMNOLENCE [None]
  - SUDDEN HEARING LOSS [None]
  - VISION BLURRED [None]
